FAERS Safety Report 9809433 (Version 3)
Quarter: 2014Q1

REPORT INFORMATION
  Report Type: Spontaneous
  Country: US (occurrence: US)
  Receive Date: 20140110
  Receipt Date: 20140120
  Transmission Date: 20141002
  Serious: Yes (Death, Hospitalization, Other)
  Sender: FDA-Public Use
  Company Number: US-BAXTER-2014BAX000193

PATIENT
  Sex: Female

DRUGS (8)
  1. DIANEAL LOW CALCIUM [Suspect]
     Indication: PERITONEAL DIALYSIS
     Route: 033
     Dates: start: 2001, end: 201312
  2. DIANEAL LOW CALCIUM [Suspect]
     Route: 033
     Dates: start: 2001, end: 201312
  3. DIANEAL LOW CALCIUM [Suspect]
     Indication: PERITONEAL DIALYSIS
     Route: 033
     Dates: start: 2001, end: 201312
  4. DIANEAL LOW CALCIUM [Suspect]
     Route: 033
     Dates: start: 2001, end: 201312
  5. DIANEAL LOW CALCIUM (ULTRABAG) [Suspect]
     Indication: PERITONEAL DIALYSIS
     Route: 033
     Dates: end: 201312
  6. DIANEAL LOW CALCIUM (ULTRABAG) [Suspect]
     Route: 033
     Dates: end: 201312
  7. DIANEAL LOW CALCIUM (ULTRABAG) [Suspect]
     Indication: PERITONEAL DIALYSIS
     Route: 033
     Dates: end: 201312
  8. DIANEAL LOW CALCIUM (ULTRABAG) [Suspect]
     Route: 033
     Dates: end: 201312

REACTIONS (9)
  - Cardio-respiratory arrest [Fatal]
  - Myocardial infarction [Recovering/Resolving]
  - Failure to thrive [Recovering/Resolving]
  - Cardiac output decreased [Recovering/Resolving]
  - Aortic valve stenosis [Recovering/Resolving]
  - Condition aggravated [Recovering/Resolving]
  - Anxiety [Recovering/Resolving]
  - Coronary artery disease [Unknown]
  - Hypotension [Recovering/Resolving]
